FAERS Safety Report 18768541 (Version 1)
Quarter: 2021Q1

REPORT INFORMATION
  Report Type: Spontaneous
  Country: US (occurrence: US)
  Receive Date: 20210121
  Receipt Date: 20210121
  Transmission Date: 20210419
  Serious: Yes (Hospitalization)
  Sender: FDA-Public Use
  Company Number: None

PATIENT
  Age: 77 Year
  Sex: Female

DRUGS (1)
  1. INLYTA [Suspect]
     Active Substance: AXITINIB
     Indication: RENAL CANCER
     Route: 048
     Dates: start: 20190501, end: 20210112

REACTIONS (6)
  - Type 1 diabetes mellitus [None]
  - Atrial fibrillation [None]
  - Cardiac failure [None]
  - Therapy cessation [None]
  - Presyncope [None]
  - Blood glucose increased [None]

NARRATIVE: CASE EVENT DATE: 20210112
